FAERS Safety Report 24707314 (Version 2)
Quarter: 2024Q4

REPORT INFORMATION
  Report Type: Spontaneous
  Country: US (occurrence: US)
  Receive Date: 20241206
  Receipt Date: 20241206
  Transmission Date: 20250115
  Serious: No
  Sender: NOVO NORDISK
  Company Number: US-NOVOPROD-1206655

PATIENT
  Age: 67 Year
  Sex: Male

DRUGS (4)
  1. NOVOLIN R [Suspect]
     Active Substance: INSULIN HUMAN
     Indication: Type 1 diabetes mellitus
     Dosage: 6 OR 7 UNITS DAILY.
     Route: 058
     Dates: start: 1992
  2. NOVOLIN R [Suspect]
     Active Substance: INSULIN HUMAN
     Dosage: UNK(RESTARTED)
     Route: 058
     Dates: start: 2013
  3. NOVOLIN N [Suspect]
     Active Substance: INSULIN HUMAN
     Dosage: UNK(RESTARTED)
     Route: 058
     Dates: start: 2013
  4. NOVOLIN N [Suspect]
     Active Substance: INSULIN HUMAN
     Indication: Type 1 diabetes mellitus
     Dosage: 35 UNITS DAILY
     Route: 058
     Dates: start: 1992

REACTIONS (3)
  - Skin odour abnormal [Unknown]
  - Diabetes mellitus inadequate control [Unknown]
  - Product quality issue [Unknown]

NARRATIVE: CASE EVENT DATE: 20240322
